FAERS Safety Report 4424717-8 (Version None)
Quarter: 2004Q3

REPORT INFORMATION
  Report Type: 
  Country: None (occurrence: None)
  Receive Date: 20040719
  Receipt Date: 20040115
  Transmission Date: 20050211
  Serious: Yes (Hospitalization)
  Sender: FDA-Public Use
  Company Number: 190582

PATIENT
  Age: 52 Year
  Sex: Female
  Weight: 57.1532 kg

DRUGS (6)
  1. AVONEX [Suspect]
     Indication: MULTIPLE SCLEROSIS
     Dosage: 30 MCG QW IM
     Route: 030
     Dates: start: 19960101, end: 20030901
  2. AVONEX [Suspect]
     Indication: MULTIPLE SCLEROSIS
     Dosage: 22.5 MCG QW IM
     Route: 030
     Dates: start: 20030901, end: 20030901
  3. AVONEX [Suspect]
     Indication: MULTIPLE SCLEROSIS
     Dosage: 22.5 MCG QW IM
     Route: 030
     Dates: start: 20030901
  4. MULTIVITAMIN [Concomitant]
  5. ORAL MYELIN SUPPLEMENT (NOS) [Concomitant]
  6. DIAZEPAM [Concomitant]

REACTIONS (7)
  - COORDINATION ABNORMAL [None]
  - DIFFICULTY IN WALKING [None]
  - KIDNEY INFECTION [None]
  - MUSCLE SPASTICITY [None]
  - PROGRESSIVE MULTIPLE SCLEROSIS [None]
  - URINARY RETENTION [None]
  - URINARY TRACT INFECTION [None]
